FAERS Safety Report 12435962 (Version 1)
Quarter: 2016Q2

REPORT INFORMATION
  Report Type: Spontaneous
  Country: FR (occurrence: FR)
  Receive Date: 20160604
  Receipt Date: 20160604
  Transmission Date: 20160815
  Serious: Yes (Hospitalization, Other)
  Sender: FDA-Public Use
  Company Number: FR-ASTRAZENECA-2016SE57629

PATIENT
  Age: 89 Year
  Sex: Female

DRUGS (18)
  1. FUROSEMIDE. [Concomitant]
     Active Substance: FUROSEMIDE
     Route: 048
  2. INSPRA [Concomitant]
     Active Substance: EPLERENONE
     Route: 048
  3. BRILIQUE [Suspect]
     Active Substance: TICAGRELOR
     Indication: ANGIOPLASTY
     Route: 048
     Dates: start: 201601, end: 20160330
  4. KARDEGIC [Suspect]
     Active Substance: ASPIRIN LYSINE
     Indication: ANGIOPLASTY
     Route: 048
     Dates: start: 201601
  5. GLUCOPHAGE [Concomitant]
     Active Substance: METFORMIN HYDROCHLORIDE
     Route: 048
     Dates: end: 201604
  6. TARDYFERON [Concomitant]
     Active Substance: FERROUS SULFATE\FOLIC ACID
     Route: 048
  7. SPECIAFOLDINE [Concomitant]
     Active Substance: FOLIC ACID
     Route: 048
  8. LANSOPRAZOLE. [Concomitant]
     Active Substance: LANSOPRAZOLE
     Route: 048
  9. TRIATEC [Concomitant]
     Active Substance: RAMIPRIL
     Route: 048
  10. DIFFU K [Concomitant]
     Active Substance: POTASSIUM CHLORIDE
     Dosage: 600 MG TWICE PER DAY
     Route: 048
  11. BROMAZEPAM [Concomitant]
     Active Substance: BROMAZEPAM
     Dosage: 1/4 DF TWICE PER DAY
     Route: 048
  12. ACTONEL [Concomitant]
     Active Substance: RISEDRONATE SODIUM
     Route: 048
  13. BISOCE [Concomitant]
     Active Substance: BISOPROLOL
     Route: 048
  14. TAHOR [Concomitant]
     Active Substance: ATORVASTATIN CALCIUM
     Route: 048
  15. SEROPLEX [Concomitant]
     Active Substance: ESCITALOPRAM OXALATE
     Route: 048
  16. JANUMET [Concomitant]
     Active Substance: METFORMIN HYDROCHLORIDE\SITAGLIPTIN PHOSPHATE
     Dosage: 1 DF TWICE PER DAY
     Route: 048
  17. DIAMICRON [Concomitant]
     Active Substance: GLICLAZIDE
     Dosage: 60 MG TWICE PER DAY
     Route: 048
  18. OROCAL [Concomitant]
     Active Substance: CALCIUM CARBONATE
     Route: 048

REACTIONS (10)
  - Asthenia [Recovered/Resolved]
  - Pneumonia klebsiella [Unknown]
  - Dyspnoea [Recovered/Resolved]
  - Haemorrhage [Unknown]
  - Blood lactic acid increased [Unknown]
  - Decreased appetite [Recovered/Resolved]
  - Iron deficiency anaemia [Recovering/Resolving]
  - Renal failure [Unknown]
  - Gastrointestinal angiodysplasia [Unknown]
  - Urinary tract infection [Unknown]

NARRATIVE: CASE EVENT DATE: 201603
